FAERS Safety Report 5330136-2 (Version None)
Quarter: 2007Q2

REPORT INFORMATION
  Report Type: 
  Country: None (occurrence: None)
  Receive Date: 20070521
  Receipt Date: 20070510
  Transmission Date: 20071010
  Serious: Yes (Other)
  Sender: FDA-Public Use
  Company Number: JP-PFIZER INC-2007034366

PATIENT
  Sex: Female

DRUGS (8)
  1. ZOLOFT [Suspect]
     Route: 048
  2. MEILAX [Concomitant]
     Route: 048
  3. EURODIN [Concomitant]
     Route: 048
  4. GASMOTIN [Concomitant]
     Route: 048
  5. SOLANAX [Concomitant]
  6. ROHYPNOL [Concomitant]
     Route: 048
  7. DORAL [Concomitant]
  8. VEGETAMIN [Concomitant]

REACTIONS (11)
  - ANXIETY [None]
  - DECREASED APPETITE [None]
  - DEPRESSED LEVEL OF CONSCIOUSNESS [None]
  - DEPRESSED MOOD [None]
  - INSOMNIA [None]
  - IRRITABILITY [None]
  - MULTIPLE DRUG OVERDOSE [None]
  - MULTIPLE DRUG OVERDOSE INTENTIONAL [None]
  - PARTNER STRESS [None]
  - SUICIDAL IDEATION [None]
  - SUICIDE ATTEMPT [None]
